FAERS Safety Report 10128182 (Version 1)
Quarter: 2014Q2

REPORT INFORMATION
  Report Type: Spontaneous
  Country: US (occurrence: US)
  Receive Date: 20140428
  Receipt Date: 20140428
  Transmission Date: 20141212
  Serious: No
  Sender: FDA-Public Use
  Company Number: US-BIOGENIDEC-2014BI024280

PATIENT
  Age: 53 Year
  Sex: Female

DRUGS (11)
  1. TECFIDERA [Suspect]
     Indication: MULTIPLE SCLEROSIS
     Route: 048
     Dates: start: 20140208
  2. TECFIDERA [Suspect]
     Indication: MULTIPLE SCLEROSIS
     Route: 048
     Dates: start: 20140208
  3. AMPYRA [Concomitant]
  4. COLACE [Concomitant]
  5. CYMBALTA [Concomitant]
  6. DOCUSATE CALCIUM [Concomitant]
  7. FISH OIL [Concomitant]
  8. GLUCOSAMINE-CHONDROITIN [Concomitant]
  9. VITAMIN D [Concomitant]
  10. LEXAPRO [Concomitant]
  11. FIBER [Concomitant]

REACTIONS (3)
  - Chills [Unknown]
  - Flushing [Unknown]
  - Pruritus generalised [Unknown]
